FAERS Safety Report 11340013 (Version 2)
Quarter: 2015Q3

REPORT INFORMATION
  Report Type: Spontaneous
  Country: US (occurrence: US)
  Receive Date: 20150805
  Receipt Date: 20150813
  Transmission Date: 20151125
  Serious: Yes (Death)
  Sender: FDA-Public Use
  Company Number: CHPA2015US009169

PATIENT
  Age: 86 Year
  Sex: Male

DRUGS (1)
  1. VOLTAREN [Suspect]
     Active Substance: DICLOFENAC SODIUM
     Indication: ARTHRITIS
     Dosage: A SQUEEZE, UNK
     Route: 061
     Dates: end: 2014

REACTIONS (1)
  - Pulmonary hypertension [Fatal]
